FAERS Safety Report 9614451 (Version 1)
Quarter: 2013Q4

REPORT INFORMATION
  Report Type: Report from Study
  Country: US (occurrence: US)
  Receive Date: 20131011
  Receipt Date: 20131011
  Transmission Date: 20140711
  Serious: Yes (Other)
  Sender: FDA-Public Use
  Company Number: US-MYLANLABS-2013S1019808

PATIENT
  Sex: Female

DRUGS (1)
  1. AMNESTEEM CAPSULES [Suspect]
     Indication: ACNE
     Dates: start: 20130429, end: 20130828

REACTIONS (3)
  - Glioma [Not Recovered/Not Resolved]
  - Convulsion [Not Recovered/Not Resolved]
  - Tendonitis [Not Recovered/Not Resolved]
